FAERS Safety Report 22320275 (Version 3)
Quarter: 2025Q2

REPORT INFORMATION
  Report Type: Spontaneous
  Country: PL (occurrence: PL)
  Receive Date: 20230515
  Receipt Date: 20250404
  Transmission Date: 20250716
  Serious: Yes (Hospitalization, Other)
  Sender: BAUSCH AND LOMB
  Company Number: PL-MLMSERVICE-20151201-0096235-1

PATIENT
  Age: 4 Year
  Sex: Female

DRUGS (4)
  1. PIMECROLIMUS [Suspect]
     Active Substance: PIMECROLIMUS
     Indication: Dermatitis atopic
     Route: 065
  2. MOMETASONE FUROATE [Suspect]
     Active Substance: MOMETASONE FUROATE
     Indication: Dermatitis atopic
     Route: 061
  3. MOMETASONE [Suspect]
     Active Substance: MOMETASONE
     Indication: Dermatitis atopic
     Route: 061
  4. METHYLPREDNISOLONE ACEPONATE [Suspect]
     Active Substance: METHYLPREDNISOLONE ACEPONATE
     Indication: Dermatitis atopic
     Route: 061

REACTIONS (3)
  - Growth retardation [Recovered/Resolved]
  - Cushing^s syndrome [Recovered/Resolved]
  - Intentional product misuse [Unknown]
